FAERS Safety Report 12583883 (Version 1)
Quarter: 2016Q3

REPORT INFORMATION
  Report Type: Spontaneous
  Country: US (occurrence: US)
  Receive Date: 20160722
  Receipt Date: 20160722
  Transmission Date: 20161109
  Serious: No
  Sender: FDA-Public Use
  Company Number: US-FRI-1000082141

PATIENT
  Age: 48 Year
  Sex: Female
  Weight: 54.43 kg

DRUGS (2)
  1. SUBOXONE [Concomitant]
     Active Substance: BUPRENORPHINE HYDROCHLORIDE\NALOXONE HYDROCHLORIDE
     Route: 048
  2. NAMENDA XR [Suspect]
     Active Substance: MEMANTINE HYDROCHLORIDE
     Indication: DRUG WITHDRAWAL SYNDROME
     Dosage: 7MG
     Route: 048
     Dates: start: 20160107

REACTIONS (8)
  - Disorientation [Not Recovered/Not Resolved]
  - Irregular breathing [Not Recovered/Not Resolved]
  - Off label use [Not Recovered/Not Resolved]
  - Feeling abnormal [Not Recovered/Not Resolved]
  - Expired product administered [Not Recovered/Not Resolved]
  - Abdominal discomfort [Not Recovered/Not Resolved]
  - Dizziness [Not Recovered/Not Resolved]
  - Intentional product misuse [Not Recovered/Not Resolved]

NARRATIVE: CASE EVENT DATE: 20160107
